FAERS Safety Report 7019874-3 (Version None)
Quarter: 2010Q3

REPORT INFORMATION
  Report Type: 
  Country: None (occurrence: None)
  Receive Date: 20100929
  Receipt Date: 20100706
  Transmission Date: 20110219
  Serious: Yes (Hospitalization)
  Sender: FDA-Public Use
  Company Number: US-BAYER-201020424NA

PATIENT
  Age: 32 Year
  Sex: Female
  Weight: 57 kg

DRUGS (3)
  1. YASMIN [Suspect]
     Indication: ORAL CONTRACEPTION
     Route: 048
     Dates: start: 20050314, end: 20080308
  2. YAZ [Suspect]
     Indication: ORAL CONTRACEPTION
     Route: 048
     Dates: start: 20080308, end: 20080429
  3. ALEVE (CAPLET) [Concomitant]
     Dates: start: 20010101

REACTIONS (3)
  - DEEP VEIN THROMBOSIS [None]
  - PAIN IN EXTREMITY [None]
  - THROMBOSIS [None]
